FAERS Safety Report 9441243 (Version 3)
Quarter: 2013Q3

REPORT INFORMATION
  Report Type: Spontaneous
  Country: CA (occurrence: CA)
  Receive Date: 20130805
  Receipt Date: 20130906
  Transmission Date: 20140515
  Serious: Yes (Life-Threatening, Hospitalization, Other)
  Sender: FDA-Public Use
  Company Number: CA-GILEAD-2013-0080645

PATIENT
  Age: 63 Year
  Sex: Male

DRUGS (12)
  1. VIREAD [Suspect]
     Indication: HIV INFECTION
     Dosage: 300 MG, QD
     Route: 048
     Dates: start: 2008
  2. 3TC [Concomitant]
     Indication: PRODUCT USED FOR UNKNOWN INDICATION
  3. NEVIRAPINE [Concomitant]
     Indication: HIV INFECTION
     Dosage: 200 MG, BID
     Route: 048
  4. RALTEGRAVIR [Concomitant]
     Indication: HIV INFECTION
     Dosage: 400 MG, BID
     Route: 048
  5. MARAVIROC [Concomitant]
     Indication: HIV INFECTION
     Dosage: 300 MG, BID
     Route: 048
  6. LAMIVUDINE [Concomitant]
     Indication: HIV INFECTION
     Dosage: 300 MG, QD
     Route: 048
  7. GABAPENTIN [Concomitant]
     Indication: PAIN
     Dosage: 600 MG, UNK
     Route: 048
  8. ASPIRIN [Concomitant]
     Indication: CARDIOVASCULAR EVENT PROPHYLAXIS
     Dosage: 81 MG, UNK
     Route: 048
  9. RANITIDE [Concomitant]
     Indication: GASTROOESOPHAGEAL REFLUX DISEASE
     Dosage: 150 MG, UNK
     Route: 048
  10. LEVOTHYROXINE [Concomitant]
     Indication: HYPOTHYROIDISM
     Dosage: 75 ?G, UNK
     Route: 048
  11. ACYCLOVIR                          /00587301/ [Concomitant]
     Indication: HERPES SIMPLEX
     Dosage: 800 MG, UNK
     Route: 048
  12. SEPTRA [Concomitant]
     Indication: PRODUCT USED FOR UNKNOWN INDICATION

REACTIONS (2)
  - Sepsis [Recovered/Resolved]
  - Renal failure acute [Recovered/Resolved]
